FAERS Safety Report 6083767-9 (Version None)
Quarter: 2009Q1

REPORT INFORMATION
  Report Type: 
  Country: None (occurrence: None)
  Receive Date: 20090219
  Receipt Date: 20080128
  Transmission Date: 20090719
  Serious: No
  Sender: FDA-Public Use
  Company Number: US-ASTRAZENECA-2008UW01994

PATIENT
  Age: 54 Year
  Sex: Female
  Weight: 61.7 kg

DRUGS (1)
  1. ACCOLATE [Suspect]
     Indication: SCAR
     Route: 048
     Dates: start: 20071201

REACTIONS (1)
  - BLOOD PRESSURE INCREASED [None]
